FAERS Safety Report 4461755-3 (Version None)
Quarter: 2004Q3

REPORT INFORMATION
  Report Type: 
  Country: None (occurrence: None)
  Receive Date: 20040929
  Receipt Date: 20031009
  Transmission Date: 20050211
  Serious: No
  Sender: FDA-Public Use
  Company Number: US-GLAXOSMITHKLINE-A0429659A

PATIENT
  Sex: Female

DRUGS (4)
  1. SEREVENT [Suspect]
     Dosage: 50MCG TWICE PER DAY
     Route: 055
  2. SINGULAIR [Concomitant]
  3. MICARDIS [Concomitant]
  4. ASPIRIN [Concomitant]

REACTIONS (4)
  - FATIGUE [None]
  - INSOMNIA [None]
  - MENTAL IMPAIRMENT [None]
  - NIGHT SWEATS [None]
